FAERS Safety Report 15414544 (Version 1)
Quarter: 2018Q3

REPORT INFORMATION
  Report Type: Spontaneous
  Country: US (occurrence: US)
  Receive Date: 20180921
  Receipt Date: 20180921
  Transmission Date: 20181010
  Serious: No
  Sender: FDA-Public Use
  Company Number: US-MYLANLABS-2018M1065611

PATIENT
  Weight: 130 kg

DRUGS (1)
  1. GLATIRAMER ACETATE INJECTION [Suspect]
     Active Substance: GLATIRAMER ACETATE
     Indication: MULTIPLE SCLEROSIS
     Dosage: 40 MG, 3XW
     Dates: start: 20180905

REACTIONS (2)
  - Wrong technique in product usage process [Recovering/Resolving]
  - Device dispensing error [Unknown]

NARRATIVE: CASE EVENT DATE: 20180905
